FAERS Safety Report 6505577-8 (Version None)
Quarter: 2009Q4

REPORT INFORMATION
  Report Type: 
  Country: None (occurrence: None)
  Receive Date: 20091218
  Receipt Date: 20090911
  Transmission Date: 20100525
  Serious: Yes (Hospitalization, Other)
  Sender: FDA-Public Use
  Company Number: CO-ROCHE-656140

PATIENT
  Sex: Female

DRUGS (1)
  1. XENICAL [Suspect]
     Indication: OVERWEIGHT
     Route: 048
     Dates: start: 20070101, end: 20080501

REACTIONS (3)
  - HEPATIC ENZYME INCREASED [None]
  - HEPATIC STEATOSIS [None]
  - SUBCLAVIAN VEIN THROMBOSIS [None]
